FAERS Safety Report 9001473 (Version 1)
Quarter: 2013Q1

REPORT INFORMATION
  Report Type: Spontaneous
  Country: GB (occurrence: GB)
  Receive Date: 20130107
  Receipt Date: 20130107
  Transmission Date: 20140127
  Serious: Yes (Other)
  Sender: FDA-Public Use
  Company Number: PHHY2013GB001037

PATIENT
  Age: 59 Year
  Sex: Male
  Weight: 93.2 kg

DRUGS (5)
  1. SIMVASTATIN [Suspect]
     Dates: start: 20121121
  2. SALBUTAMOL [Concomitant]
     Dates: start: 20120509
  3. ERYTHROMYCIN [Concomitant]
     Dates: start: 20121009, end: 20121016
  4. BECLOMETASONE [Concomitant]
     Dates: start: 20121023
  5. BENDROFLUMETHIAZIDE [Concomitant]
     Dates: start: 20121121, end: 20121219

REACTIONS (2)
  - Psychomotor hyperactivity [Recovered/Resolved]
  - Myalgia [Recovered/Resolved]
